FAERS Safety Report 6754944-6 (Version None)
Quarter: 2010Q2

REPORT INFORMATION
  Report Type: 
  Country: None (occurrence: None)
  Receive Date: 20100602
  Receipt Date: 20100518
  Transmission Date: 20101027
  Serious: Yes (Death, Life-Threatening, Hospitalization)
  Sender: FDA-Public Use
  Company Number: GB-ACCORD-004648

PATIENT
  Age: 70 Year
  Sex: Male

DRUGS (3)
  1. SIMVASTATIN [Suspect]
     Indication: HYPERCHOLESTEROLAEMIA
     Dosage: 40.00-MG-ORAL
     Route: 048
  2. ERYTHROMYCIN [Suspect]
     Indication: LOWER RESPIRATORY TRACT INFECTION
     Dosage: 250.00-MG-4.00PE,
  3. CLARITHROMYCIN [Concomitant]

REACTIONS (8)
  - DRUG INTERACTION [None]
  - HAEMODIALYSIS [None]
  - LOWER RESPIRATORY TRACT INFECTION [None]
  - PSOAS ABSCESS [None]
  - RENAL FAILURE [None]
  - RHABDOMYOLYSIS [None]
  - SEPSIS [None]
  - UNRESPONSIVE TO STIMULI [None]
